FAERS Safety Report 5527168-8 (Version None)
Quarter: 2007Q4

REPORT INFORMATION
  Report Type: 
  Country: None (occurrence: None)
  Receive Date: 20071121
  Receipt Date: 20071113
  Transmission Date: 20080405
  Serious: Yes (Hospitalization)
  Sender: FDA-Public Use
  Company Number: US021734

PATIENT
  Age: 37 Year
  Sex: Female

DRUGS (1)
  1. PROVIGIL [Suspect]
     Dosage: ORAL
     Route: 048
     Dates: start: 20050422, end: 20050422

REACTIONS (4)
  - INCORRECT DOSE ADMINISTERED [None]
  - LETHARGY [None]
  - SOMNOLENCE [None]
  - SUICIDE ATTEMPT [None]
